FAERS Safety Report 12770403 (Version 18)
Quarter: 2019Q3

REPORT INFORMATION
  Report Type: Spontaneous
  Country: CA (occurrence: CA)
  Receive Date: 20160922
  Receipt Date: 20190826
  Transmission Date: 20191004
  Serious: Yes (Hospitalization, Other)
  Sender: FDA-Public Use
  Company Number: CA-ROCHE-1832876

PATIENT
  Age: 13 Year
  Sex: Male

DRUGS (17)
  1. XOLAIR [Suspect]
     Active Substance: OMALIZUMAB
     Indication: ASTHMA
     Route: 058
     Dates: start: 20150216
  2. XOLAIR [Suspect]
     Active Substance: OMALIZUMAB
     Route: 058
     Dates: start: 2017
  3. XOLAIR [Suspect]
     Active Substance: OMALIZUMAB
     Route: 058
     Dates: start: 20180425
  4. XOLAIR [Suspect]
     Active Substance: OMALIZUMAB
     Route: 058
     Dates: start: 20180911
  5. XOLAIR [Suspect]
     Active Substance: OMALIZUMAB
     Route: 058
     Dates: start: 20190422
  6. XOLAIR [Suspect]
     Active Substance: OMALIZUMAB
     Route: 058
     Dates: start: 20190729
  7. XOLAIR [Suspect]
     Active Substance: OMALIZUMAB
     Route: 058
     Dates: start: 20160907
  8. XOLAIR [Suspect]
     Active Substance: OMALIZUMAB
     Route: 058
     Dates: start: 20180814
  9. XOLAIR [Suspect]
     Active Substance: OMALIZUMAB
     Route: 058
     Dates: start: 20170717
  10. XOLAIR [Suspect]
     Active Substance: OMALIZUMAB
     Route: 058
     Dates: start: 20181219
  11. VENTOLIN [Concomitant]
     Active Substance: ALBUTEROL SULFATE
     Indication: PRODUCT USED FOR UNKNOWN INDICATION
     Dosage: (VENTOLIN PUMPS)
     Route: 065
  12. XOLAIR [Suspect]
     Active Substance: OMALIZUMAB
     Route: 058
     Dates: start: 20180228
  13. DECADRON [Concomitant]
     Active Substance: DEXAMETHASONE
     Indication: PRODUCT USED FOR UNKNOWN INDICATION
     Route: 048
  14. ZENHALE [Concomitant]
     Active Substance: FORMOTEROL FUMARATE\MOMETASONE FUROATE
     Dosage: DOSE INCREASED
     Route: 055
     Dates: start: 20180911
  15. XOLAIR [Suspect]
     Active Substance: OMALIZUMAB
     Route: 058
     Dates: start: 20190212
  16. ZENHALE [Concomitant]
     Active Substance: FORMOTEROL FUMARATE\MOMETASONE FUROATE
     Indication: DYSPNOEA
     Route: 065
  17. SINGULAIR [Concomitant]
     Active Substance: MONTELUKAST SODIUM
     Indication: PRODUCT USED FOR UNKNOWN INDICATION
     Dosage: (AT BED TIME)
     Route: 065

REACTIONS (35)
  - Secretion discharge [Unknown]
  - Ligament sprain [Unknown]
  - Humidity intolerance [Unknown]
  - General physical health deterioration [Unknown]
  - Back pain [Unknown]
  - Pyrexia [Unknown]
  - Rhinorrhoea [Recovered/Resolved]
  - Wheezing [Unknown]
  - Muscle tightness [Unknown]
  - Cough [Unknown]
  - Throat clearing [Unknown]
  - Sputum discoloured [Unknown]
  - Injection site pain [Unknown]
  - Pneumonia [Unknown]
  - Use of accessory respiratory muscles [Not Recovered/Not Resolved]
  - Nasopharyngitis [Recovered/Resolved]
  - Increased bronchial secretion [Unknown]
  - Bronchospasm [Unknown]
  - Skin lesion [Unknown]
  - Middle insomnia [Not Recovered/Not Resolved]
  - Chest discomfort [Unknown]
  - Hypersensitivity [Unknown]
  - Productive cough [Recovered/Resolved]
  - Erythema [Unknown]
  - Asthma [Recovering/Resolving]
  - Weight increased [Unknown]
  - Nasal discharge discolouration [Recovered/Resolved]
  - Nasal congestion [Unknown]
  - Crepitations [Unknown]
  - Tinea infection [Not Recovered/Not Resolved]
  - Dyspnoea [Not Recovered/Not Resolved]
  - Contusion [Unknown]
  - Fungal infection [Unknown]
  - Temperature intolerance [Unknown]
  - Acne [Unknown]

NARRATIVE: CASE EVENT DATE: 201609
